FAERS Safety Report 19039590 (Version 2)
Quarter: 2021Q1

REPORT INFORMATION
  Report Type: Report from Study
  Country: KR (occurrence: KR)
  Receive Date: 20210322
  Receipt Date: 20210326
  Transmission Date: 20210420
  Serious: Yes (Death)
  Sender: FDA-Public Use
  Company Number: KR-JNJFOC-20210332187

PATIENT
  Age: 62 Year
  Sex: Male
  Weight: 58 kg

DRUGS (14)
  1. ESKETAMINE [Suspect]
     Active Substance: ESKETAMINE
     Indication: DEPRESSION
     Dates: start: 20170706, end: 20201123
  2. ALMAGATE [Concomitant]
     Active Substance: ALMAGATE
     Indication: GASTROOESOPHAGEAL REFLUX DISEASE
     Route: 048
     Dates: start: 20200916
  3. ONGLYZA [SAXAGLIPTIN] [Concomitant]
     Indication: DIABETES MELLITUS
     Route: 048
     Dates: start: 20201008
  4. TOCOPHEROL ACETATE [TOCOPHEROL] [Concomitant]
     Indication: SUPPLEMENTATION THERAPY
     Route: 048
     Dates: start: 20151101
  5. PRAMIPEXOLE HYDROCHLORIDE [Concomitant]
     Active Substance: PRAMIPEXOLE DIHYDROCHLORIDE
     Indication: RESTLESS LEGS SYNDROME
     Route: 048
     Dates: start: 20080502
  6. ROPINIROLE HYDROCHLORIDE. [Concomitant]
     Active Substance: ROPINIROLE HYDROCHLORIDE
     Indication: RESTLESS LEGS SYNDROME
     Route: 048
     Dates: start: 20080502
  7. NAPROXIN [NAPROXEN] [Concomitant]
     Indication: BACK PAIN
     Route: 048
     Dates: start: 20100520
  8. ESOMEPRAZOLE STRONTIUM. [Concomitant]
     Active Substance: ESOMEPRAZOLE STRONTIUM
     Indication: GASTROOESOPHAGEAL REFLUX DISEASE
     Route: 048
     Dates: start: 20010502
  9. SERETIDE [Concomitant]
     Active Substance: FLUTICASONE PROPIONATE\SALMETEROL XINAFOATE
     Indication: ASTHMA
     Dates: start: 20180517
  10. SIAMLOPIN [Concomitant]
     Indication: HYPERTENSION
     Route: 048
     Dates: start: 20200122
  11. GASTER [Concomitant]
     Active Substance: FAMOTIDINE
     Indication: GASTROOESOPHAGEAL REFLUX DISEASE
     Route: 048
     Dates: start: 20200814
  12. VENLAFAXINE [Concomitant]
     Active Substance: VENLAFAXINE HYDROCHLORIDE
     Indication: DEPRESSION
     Route: 048
     Dates: start: 20200115
  13. ZOLPIDEM [Concomitant]
     Active Substance: ZOLPIDEM TARTRATE
     Indication: INSOMNIA
     Route: 048
     Dates: start: 20160318
  14. BIPHERAN PLUS [Concomitant]
     Indication: PROPHYLAXIS
     Route: 048
     Dates: start: 20200709

REACTIONS (1)
  - Death [Fatal]

NARRATIVE: CASE EVENT DATE: 20201201
